FAERS Safety Report 6585710-2 (Version None)
Quarter: 2010Q1

REPORT INFORMATION
  Report Type: 
  Country: None (occurrence: None)
  Receive Date: 20100217
  Receipt Date: 20100212
  Transmission Date: 20100710
  Serious: Yes (Life-Threatening, Hospitalization)
  Sender: FDA-Public Use
  Company Number: DE-WYE-G05562710

PATIENT
  Age: 83 Year
  Sex: Female
  Weight: 96 kg

DRUGS (8)
  1. TAZOBAC EF [Suspect]
     Route: 042
     Dates: start: 20090803, end: 20090803
  2. TAZOBAC EF [Suspect]
     Route: 042
     Dates: start: 20090804, end: 20090809
  3. CITALOPRAM HYDROBROMIDE [Suspect]
     Route: 048
     Dates: start: 20090717, end: 20090816
  4. METAMIZOLE [Suspect]
     Dosage: DIFFERENT SINGLE DOSES WITH BREAKS (NOT FURTHER SPECIFIED)
     Route: 048
     Dates: start: 20090508, end: 20090617
  5. UNACID PD ORAL [Suspect]
     Route: 048
     Dates: start: 20090728, end: 20090804
  6. CEFTRIAXONE SODIUM [Suspect]
     Route: 030
     Dates: start: 20090803, end: 20090809
  7. HALDOL [Suspect]
     Route: 048
     Dates: start: 20090808, end: 20090813
  8. PANTOZOL [Suspect]
     Dosage: SINGLE DOSE 20 OR 40 MG, PRECISE DOSE REGIMEN UNKNOWN
     Route: 048
     Dates: start: 20090726, end: 20090815

REACTIONS (2)
  - PANCYTOPENIA [None]
  - WOUND INFECTION [None]
